FAERS Safety Report 4840906-2 (Version None)
Quarter: 2005Q4

REPORT INFORMATION
  Report Type: 
  Country: None (occurrence: None)
  Receive Date: 20051130
  Receipt Date: 20050922
  Transmission Date: 20060501
  Serious: Yes (Hospitalization)
  Sender: FDA-Public Use
  Company Number: PHBS2005JP14132

PATIENT
  Age: 10 Year
  Sex: Female
  Weight: 30 kg

DRUGS (3)
  1. TEGRETOL [Suspect]
     Indication: PARTIAL SEIZURES
     Dosage: 550 MG/DAY
     Route: 048
     Dates: start: 20041101, end: 20050929
  2. LEUKERIN [Suspect]
     Indication: ACUTE LYMPHOCYTIC LEUKAEMIA
     Dosage: 50 MG/DAY
     Route: 048
     Dates: start: 20050822, end: 20050902
  3. EXCEGRAN [Suspect]

REACTIONS (11)
  - CONVULSION [None]
  - DRUG INTERACTION [None]
  - HAEMOGLOBIN DECREASED [None]
  - MALAISE [None]
  - NEUTROPENIA [None]
  - NYSTAGMUS [None]
  - PALLOR [None]
  - PANCYTOPENIA [None]
  - PLATELET COUNT DECREASED [None]
  - STOMATITIS [None]
  - WHITE BLOOD CELL COUNT DECREASED [None]
